FAERS Safety Report 18727587 (Version 4)
Quarter: 2021Q2

REPORT INFORMATION
  Report Type: Spontaneous
  Country: US (occurrence: US)
  Receive Date: 20210112
  Receipt Date: 20210406
  Transmission Date: 20210717
  Serious: Yes (Other)
  Sender: FDA-Public Use
  Company Number: US-PFIZER INC-2021015935

PATIENT
  Age: 33 Year
  Sex: Female
  Weight: 47.63 kg

DRUGS (2)
  1. LUNESTA [Concomitant]
     Active Substance: ESZOPICLONE
     Indication: SLEEP DISORDER
     Dosage: UNK
  2. XELJANZ [Suspect]
     Active Substance: TOFACITINIB CITRATE
     Dosage: 10 MG

REACTIONS (14)
  - Loss of personal independence in daily activities [Unknown]
  - Decreased appetite [Unknown]
  - Drug ineffective [Unknown]
  - Gait disturbance [Unknown]
  - Vision blurred [Unknown]
  - Musculoskeletal stiffness [Unknown]
  - Abdominal pain lower [Unknown]
  - Dry mouth [Unknown]
  - Sedation [Unknown]
  - Anaemia [Unknown]
  - Movement disorder [Unknown]
  - Deafness [Unknown]
  - Dysgeusia [Unknown]
  - Pain [Unknown]
